FAERS Safety Report 7467380-4 (Version None)
Quarter: 2011Q2

REPORT INFORMATION
  Report Type: 
  Country: None (occurrence: None)
  Receive Date: 20110509
  Receipt Date: 20090822
  Transmission Date: 20111010
  Serious: Yes (Death)
  Sender: FDA-Public Use
  Company Number: US-BAYER-200930582NA

PATIENT
  Age: 59 Year
  Sex: Male
  Weight: 88.889 kg

DRUGS (15)
  1. BENADRYL [Concomitant]
     Dosage: UNK
     Route: 042
     Dates: start: 20051104, end: 20051104
  2. TRASYLOL [Suspect]
     Indication: CORONARY ARTERY BYPASS
     Dosage: 1 ML, UNK, INITIAL TEST DOSE
     Route: 042
     Dates: start: 20051104, end: 20051104
  3. CORDARONE [Concomitant]
     Dosage: 150MG BOLUS BY DRIP
     Route: 042
     Dates: start: 20051104, end: 20051104
  4. PLATELETS [Concomitant]
     Dosage: UNK
     Route: 042
     Dates: start: 20051104, end: 20051104
  5. RED BLOOD CELLS [Concomitant]
     Dosage: UNK
     Route: 042
     Dates: start: 20051104, end: 20051104
  6. LANOXIN [Concomitant]
     Dosage: .25 MG, QD
     Route: 048
     Dates: start: 20051102
  7. ACETYLSALICYLIC ACID SRT [Concomitant]
     Dosage: 325MG NOW
     Route: 048
     Dates: start: 20051102
  8. DOPAMINE HCL [Concomitant]
     Dosage: 5MCG/MIN
     Route: 042
     Dates: start: 20051104, end: 20051104
  9. HEPARIN [Concomitant]
     Dosage: 28,000 UNITS
     Route: 042
     Dates: start: 20051104, end: 20051104
  10. PLASMA [Concomitant]
     Dosage: UNK
     Route: 042
     Dates: start: 20051104, end: 20051104
  11. ALTACE [Concomitant]
     Dosage: 50 MG, QD
     Route: 048
  12. PLAVIX [Concomitant]
     Dosage: 300MG/NOW
     Route: 048
     Dates: start: 20051102, end: 20051102
  13. TRASYLOL [Suspect]
     Indication: AORTIC VALVE REPLACEMENT
     Dosage: 200 ML LOADING DOSE
     Route: 042
     Dates: start: 20051104, end: 20051104
  14. LIPITOR [Concomitant]
     Dosage: 40 MG, HS
     Route: 048
  15. TOPROL-XL [Concomitant]
     Dosage: 50 MG, QD
     Route: 048
     Dates: start: 20051102

REACTIONS (5)
  - INJURY [None]
  - RENAL FAILURE [None]
  - RENAL FAILURE ACUTE [None]
  - PAIN [None]
  - UNEVALUABLE EVENT [None]
